FAERS Safety Report 4401269-X (Version None)
Quarter: 2004Q3

REPORT INFORMATION
  Report Type: 
  Country: None (occurrence: None)
  Receive Date: 20040907
  Receipt Date: 20040129
  Transmission Date: 20050211
  Serious: No
  Sender: FDA-Public Use
  Company Number: US-BRISTOL-MYERS SQUIBB COMPANY-12491304

PATIENT
  Age: 60 Year
  Sex: Female
  Weight: 72 kg

DRUGS (14)
  1. COUMADIN [Suspect]
     Indication: CEREBROVASCULAR ACCIDENT
     Dosage: DOAGE VARIES.  5 MG DAILY AT TIME OF REPORT.
     Route: 048
     Dates: start: 20000101
  2. GLUCOPHAGE [Concomitant]
  3. ALPRAZOLAM [Concomitant]
  4. TOPROL-XL [Concomitant]
  5. ISOSORBIDE [Concomitant]
  6. BUTALBITAL [Concomitant]
  7. TIAZAC [Concomitant]
  8. ZOLOFT [Concomitant]
  9. NITROL PASTE [Concomitant]
  10. NITROGLYCERIN SPRAY [Concomitant]
  11. VIOXX [Concomitant]
  12. PLAVIX [Concomitant]
     Dates: end: 20030101
  13. WELCHOL [Concomitant]
     Dates: end: 20030101
  14. TYLENOL [Concomitant]

REACTIONS (2)
  - APATHY [None]
  - DEPRESSED MOOD [None]
